FAERS Safety Report 17351794 (Version 2)
Quarter: 2020Q1

REPORT INFORMATION
  Report Type: Report from Study
  Country: US (occurrence: US)
  Receive Date: 20200130
  Receipt Date: 20200206
  Transmission Date: 20200409
  Serious: Yes (Other)
  Sender: FDA-Public Use
  Company Number: US-TAIHO ONCOLOGY  INC-EU-2020-00224

PATIENT
  Age: 74 Year
  Sex: Male
  Weight: 68.55 kg

DRUGS (10)
  1. LONSURF [Suspect]
     Active Substance: TIPIRACIL HYDROCHLORIDE\TRIFLURIDINE
     Indication: COLON CANCER
     Dosage: CYCLE NUMBER 2
     Route: 048
     Dates: start: 20191129, end: 20200129
  2. ELIQUIS [Concomitant]
     Active Substance: APIXABAN
  3. NORCO [Concomitant]
     Active Substance: ACETAMINOPHEN\HYDROCODONE BITARTRATE
     Dosage: DOSE 5/325 MG
  4. FLUTICASONE PROPIONATE. [Concomitant]
     Active Substance: FLUTICASONE PROPIONATE
  5. RANITIDINE. [Concomitant]
     Active Substance: RANITIDINE
  6. CETIRIZINE [Concomitant]
     Active Substance: CETIRIZINE HYDROCHLORIDE
  7. SINGULAIR [Concomitant]
     Active Substance: MONTELUKAST SODIUM
  8. FLUTICASONE. [Concomitant]
     Active Substance: FLUTICASONE
  9. ATORVASTATIN [Concomitant]
     Active Substance: ATORVASTATIN
  10. TYLENOL (SINUS + HEADACHE) [Concomitant]

REACTIONS (5)
  - Dehydration [Not Recovered/Not Resolved]
  - Stomatitis [Not Recovered/Not Resolved]
  - Pancytopenia [Not Recovered/Not Resolved]
  - Neutropenia [Not Recovered/Not Resolved]
  - Mucosal inflammation [Not Recovered/Not Resolved]

NARRATIVE: CASE EVENT DATE: 20200124
